FAERS Safety Report 7392481-9 (Version None)
Quarter: 2011Q2

REPORT INFORMATION
  Report Type: 
  Country: None (occurrence: None)
  Receive Date: 20110404
  Receipt Date: 20110307
  Transmission Date: 20111010
  Serious: No
  Sender: FDA-Public Use
  Company Number: US-BAYER-2011-022587

PATIENT
  Sex: Female

DRUGS (1)
  1. ALEVE [Suspect]
     Indication: TOOTHACHE
     Dosage: 1 DF, UNK
     Route: 048

REACTIONS (3)
  - HYPERHIDROSIS [None]
  - CHILLS [None]
  - ABDOMINAL PAIN UPPER [None]
